FAERS Safety Report 8722394 (Version 2)
Quarter: 2013Q4

REPORT INFORMATION
  Report Type: Report from Study
  Country: US (occurrence: US)
  Receive Date: 20120814
  Receipt Date: 20131101
  Transmission Date: 20140711
  Serious: No
  Sender: FDA-Public Use
  Company Number: US-009507513-1208USA001672

PATIENT
  Sex: 0

DRUGS (2)
  1. HEXADROL INJECTION [Suspect]
     Indication: ANTIDEPRESSANT THERAPY
  2. BUPROPION HYDROCHLORIDE [Interacting]
     Indication: ANTIDEPRESSANT THERAPY

REACTIONS (2)
  - Drug interaction [Unknown]
  - Convulsive threshold lowered [Unknown]
